FAERS Safety Report 19412473 (Version 2)
Quarter: 2021Q2

REPORT INFORMATION
  Report Type: Spontaneous
  Country: IT (occurrence: IT)
  Receive Date: 20210614
  Receipt Date: 20210615
  Transmission Date: 20210717
  Serious: Yes (Other)
  Sender: FDA-Public Use
  Company Number: IT-ASTELLAS-2021US020846

PATIENT
  Age: 40 Year
  Sex: Female
  Weight: 40 kg

DRUGS (3)
  1. ISAVUCONAZOLE [Suspect]
     Active Substance: ISAVUCONAZOLE
     Indication: ANTIFUNGAL PROPHYLAXIS
     Route: 065
  2. IBRUTINIB [Concomitant]
     Active Substance: IBRUTINIB
     Indication: CENTRAL NERVOUS SYSTEM LYMPHOMA
     Route: 065
  3. ISAVUCONAZOLE [Suspect]
     Active Substance: ISAVUCONAZOLE
     Dosage: 200 MG, EVERY OTHER DAY (REPORTED AS EVERY 48 HRS)
     Route: 065

REACTIONS (5)
  - Platelet count decreased [Unknown]
  - Drug level increased [Unknown]
  - Off label use [Unknown]
  - Haematotoxicity [Unknown]
  - Neutrophil count decreased [Unknown]
